FAERS Safety Report 24393196 (Version 1)
Quarter: 2024Q4

REPORT INFORMATION
  Report Type: Spontaneous
  Country: US (occurrence: US)
  Receive Date: 20241003
  Receipt Date: 20241003
  Transmission Date: 20250114
  Serious: Yes (Death, Life-Threatening, Hospitalization)
  Sender: STRIDES
  Company Number: US-STRIDES ARCOLAB LIMITED-2024SP012644

PATIENT
  Age: 20 Year
  Sex: Female

DRUGS (2)
  1. AMLODIPINE [Suspect]
     Active Substance: AMLODIPINE BESYLATE
     Indication: Product used for unknown indication
     Dosage: UNK;SHE HAD INGESTED AMLODIPINE BETWEEN 200- 300MG
     Route: 048
  2. FLUOXETINE [Concomitant]
     Active Substance: FLUOXETINE HYDROCHLORIDE
     Indication: Product used for unknown indication
     Dosage: UNK
     Route: 048

REACTIONS (6)
  - Multiple organ dysfunction syndrome [Fatal]
  - Vasoplegia syndrome [Fatal]
  - Cardiac arrest [Fatal]
  - Toxicity to various agents [Fatal]
  - Non-cardiogenic pulmonary oedema [Recovered/Resolved]
  - Overdose [Fatal]
